FAERS Safety Report 18079832 (Version 6)
Quarter: 2021Q1

REPORT INFORMATION
  Report Type: Spontaneous
  Country: CA (occurrence: CA)
  Receive Date: 20200728
  Receipt Date: 20210113
  Transmission Date: 20210419
  Serious: Yes (Hospitalization, Other)
  Sender: FDA-Public Use
  Company Number: CA-PFIZER INC-2020242893

PATIENT
  Age: 70 Year
  Sex: Male

DRUGS (2)
  1. INLYTA [Suspect]
     Active Substance: AXITINIB
     Indication: RENAL CANCER
     Dosage: 5 MG (1 TAB), 2X/DAY
     Route: 048
     Dates: start: 20200702
  2. KEYTRUDA [Concomitant]
     Active Substance: PEMBROLIZUMAB
     Dosage: UNK

REACTIONS (9)
  - Constipation [Unknown]
  - Product use in unapproved indication [Unknown]
  - Fatigue [Unknown]
  - Micturition urgency [Unknown]
  - Renal failure [Unknown]
  - Dehydration [Unknown]
  - Off label use [Unknown]
  - Arthralgia [Unknown]
  - Sleep disorder [Unknown]

NARRATIVE: CASE EVENT DATE: 202007
